FAERS Safety Report 16008416 (Version 1)
Quarter: 2019Q1

REPORT INFORMATION
  Report Type: Spontaneous
  Country: JP (occurrence: JP)
  Receive Date: 20190226
  Receipt Date: 20190226
  Transmission Date: 20190418
  Serious: Yes (Hospitalization, Other)
  Sender: FDA-Public Use
  Company Number: JP-B.I. PHARMACEUTICALS,INC./RIDGEFIELD-2019-12-000643

PATIENT
  Age: 81 Year
  Sex: Female

DRUGS (21)
  1. OPDIVO [Suspect]
     Active Substance: NIVOLUMAB
     Dosage: 3 MG/KG, QD, ROUTE 41?DOSE(NO.) 3 DOSE 007
     Route: 050
     Dates: start: 20160622, end: 20160622
  2. OPDIVO [Suspect]
     Active Substance: NIVOLUMAB
     Dosage: 3 MG/KG, QD, ROUTE 41?DOSE(NO.) 3 DOSE 007
     Route: 050
     Dates: start: 20160817, end: 20160817
  3. GOODMIN [Concomitant]
     Active Substance: BROTIZOLAM
     Indication: PRODUCT USED FOR UNKNOWN INDICATION
     Dosage: UNK
     Route: 065
     Dates: start: 20160421
  4. OXYCONTIN [Concomitant]
     Active Substance: OXYCODONE HYDROCHLORIDE
     Indication: PRODUCT USED FOR UNKNOWN INDICATION
     Dosage: UNK
     Route: 065
     Dates: start: 20150708, end: 20160719
  5. OPDIVO [Suspect]
     Active Substance: NIVOLUMAB
     Indication: PRODUCT USED FOR UNKNOWN INDICATION
     Dosage: 3 MG/KG, QD, ROUTE 41?DOSE(NO.) 3 DOSE 007
     Route: 050
     Dates: start: 20160831, end: 20160831
  6. OPDIVO [Suspect]
     Active Substance: NIVOLUMAB
     Indication: NON-SMALL CELL LUNG CANCER RECURRENT
     Dosage: 3 MG/KG, QD, ROUTE 41?DOSE(NO.) 3 DOSE 007
     Route: 050
     Dates: start: 20160720, end: 20160720
  7. OPDIVO [Suspect]
     Active Substance: NIVOLUMAB
     Dosage: 3 MG/KG, QD, ROUTE 41?DOSE(NO.) 3 DOSE 007
     Route: 050
     Dates: start: 20160413, end: 20160413
  8. AMLODIPINE [Concomitant]
     Active Substance: AMLODIPINE BESYLATE
     Indication: PRODUCT USED FOR UNKNOWN INDICATION
     Dosage: UNK
     Route: 065
  9. MAGNESIUM OXIDE. [Concomitant]
     Active Substance: MAGNESIUM OXIDE
     Indication: PRODUCT USED FOR UNKNOWN INDICATION
     Dosage: UNK
     Route: 065
     Dates: start: 20160309
  10. OPDIVO [Suspect]
     Active Substance: NIVOLUMAB
     Dosage: 3 MG/KG, QD, ROUTE 41?DOSE(NO.) 3 DOSE 007
     Route: 050
     Dates: start: 20160525, end: 20160525
  11. OPDIVO [Suspect]
     Active Substance: NIVOLUMAB
     Dosage: 3 MG/KG, QD, ROUTE 41?DOSE(NO.) 3 DOSE 007
     Route: 050
     Dates: start: 20160706, end: 20160706
  12. OPDIVO [Suspect]
     Active Substance: NIVOLUMAB
     Dosage: 3 MG/KG, QD, ROUTE 41?DOSE(NO.) 3 DOSE 007
     Route: 050
     Dates: start: 20160427, end: 20160427
  13. TRAMCET [Concomitant]
     Active Substance: ACETAMINOPHEN\TRAMADOL
     Indication: PRODUCT USED FOR UNKNOWN INDICATION
     Dosage: UNK
     Route: 065
     Dates: start: 20150520
  14. OPDIVO [Suspect]
     Active Substance: NIVOLUMAB
     Dosage: 3 MG/KG, QD, ROUTE 41?DOSE(NO.) 3 DOSE 007
     Route: 050
     Dates: start: 20160427, end: 20160427
  15. OLOPATADINE HYDROCHLORIDE. [Concomitant]
     Active Substance: OLOPATADINE HYDROCHLORIDE
     Indication: PRODUCT USED FOR UNKNOWN INDICATION
     Dosage: UNK
     Route: 065
     Dates: start: 20160421
  16. OPDIVO [Suspect]
     Active Substance: NIVOLUMAB
     Dosage: 3 MG/KG, QD, ROUTE 41?DOSE(NO.) 3 DOSE 007
     Route: 050
     Dates: start: 20160914, end: 20160914
  17. OPDIVO [Suspect]
     Active Substance: NIVOLUMAB
     Dosage: 3 MG/KG, QD,ROUTE 41?DOSE(NO.) 3 DOSE 007
     Route: 050
     Dates: start: 20160803, end: 20160803
  18. REBAMIPIDE [Concomitant]
     Active Substance: REBAMIPIDE
     Indication: PRODUCT USED FOR UNKNOWN INDICATION
     Dosage: UNK
     Route: 065
     Dates: start: 20151127
  19. OPDIVO [Suspect]
     Active Substance: NIVOLUMAB
     Dosage: 3 MG/KG, QD, ROUTE 41?DOSE(NO.) 3 DOSE 007
     Route: 050
     Dates: start: 20160608, end: 20160608
  20. BIFIDOBACTERIUM ANIMALIS [Concomitant]
     Active Substance: BIFIDOBACTERIUM ANIMALIS LACTIS
     Indication: PRODUCT USED FOR UNKNOWN INDICATION
     Dosage: UNK
     Route: 065
  21. GILOTRIF [Suspect]
     Active Substance: AFATINIB
     Indication: PRODUCT USED FOR UNKNOWN INDICATION
     Dosage: UNK
     Route: 065
     Dates: start: 20151127, end: 20160406

REACTIONS (5)
  - Cholecystitis [Recovering/Resolving]
  - Hyperplasia [Unknown]
  - Urticaria [Unknown]
  - Insomnia [Unknown]
  - Cholangitis [Recovering/Resolving]

NARRATIVE: CASE EVENT DATE: 20160421
